FAERS Safety Report 8470889 (Version 3)
Quarter: 2013Q2

REPORT INFORMATION
  Report Type: Spontaneous
  Country: US (occurrence: US)
  Receive Date: 20120322
  Receipt Date: 20130612
  Transmission Date: 20140414
  Serious: Yes (Hospitalization, Other)
  Sender: FDA-Public Use
  Company Number: US-ASTRAZENECA-2012SE17071

PATIENT
  Age: 59 Year
  Sex: Female

DRUGS (12)
  1. NEXIUM [Suspect]
     Indication: GASTROOESOPHAGEAL REFLUX DISEASE
     Route: 048
     Dates: start: 201207
  2. METOPROLOL [Suspect]
     Indication: HYPERTENSION
     Route: 048
  3. ACIPHEX [Concomitant]
  4. WELLBUTRIN [Concomitant]
     Indication: DEPRESSION
     Route: 048
  5. WELBUTRIN [Concomitant]
     Indication: DEPRESSION
     Route: 048
  6. ZANAX [Concomitant]
     Indication: ANXIETY
     Route: 048
  7. ZANAX [Concomitant]
     Indication: PANIC ATTACK
     Route: 048
  8. GEODON [Concomitant]
     Indication: DEPRESSED MOOD
     Route: 048
  9. LIPITOR [Concomitant]
     Indication: BLOOD CHOLESTEROL ABNORMAL
     Route: 048
  10. ASPIRIN [Concomitant]
     Route: 048
  11. MULTIVITAMIN [Concomitant]
     Dosage: DAILY.
     Route: 048
  12. CALCIUM WITH VITAMIN D [Concomitant]
     Route: 048

REACTIONS (20)
  - Kyphosis [Unknown]
  - Onychomadesis [Unknown]
  - Malaise [Unknown]
  - Coeliac disease [Unknown]
  - Bone disorder [Unknown]
  - Disease recurrence [Unknown]
  - Dysphonia [Unknown]
  - Gastrooesophageal reflux disease [Unknown]
  - Oesophageal disorder [Unknown]
  - Back disorder [Unknown]
  - Weight decreased [Unknown]
  - Osteoporosis [Unknown]
  - Intervertebral disc degeneration [Unknown]
  - Throat irritation [None]
  - Hernia [None]
  - Gastrointestinal disorder [None]
  - Adverse event [Unknown]
  - Depression [Unknown]
  - Alopecia [Unknown]
  - Intentional drug misuse [Unknown]
